FAERS Safety Report 20139023 (Version 1)
Quarter: 2021Q4

REPORT INFORMATION
  Report Type: Spontaneous
  Country: US (occurrence: US)
  Receive Date: 20211202
  Receipt Date: 20211202
  Transmission Date: 20220303
  Serious: Yes (Death, Other)
  Sender: FDA-Public Use
  Company Number: US-BAYER-2021A257277

PATIENT
  Age: 73 Year
  Sex: Male

DRUGS (6)
  1. ASPIRIN [Suspect]
     Active Substance: ASPIRIN
     Dosage: UNK
     Dates: start: 20210106
  2. LASIX [Concomitant]
     Active Substance: FUROSEMIDE
     Dosage: UNK
  3. DIGOXIN [Concomitant]
     Active Substance: DIGOXIN
     Indication: Deep vein thrombosis
     Dosage: UNK
     Route: 065
  4. DIGOXIN [Concomitant]
     Active Substance: DIGOXIN
     Indication: Cardiac failure congestive
  5. XARELTO [Concomitant]
     Active Substance: RIVAROXABAN
     Indication: Deep vein thrombosis
     Dosage: 20 MG
     Route: 048
     Dates: start: 20210106
  6. XARELTO [Concomitant]
     Active Substance: RIVAROXABAN
     Indication: Cardiac failure congestive

REACTIONS (3)
  - Death [Fatal]
  - Lung neoplasm malignant [Unknown]
  - Pulmonary haemorrhage [Not Recovered/Not Resolved]

NARRATIVE: CASE EVENT DATE: 20210109
